FAERS Safety Report 6758925-8 (Version None)
Quarter: 2010Q2

REPORT INFORMATION
  Report Type: 
  Country: None (occurrence: None)
  Receive Date: 20100603
  Receipt Date: 20100511
  Transmission Date: 20101027
  Serious: Yes (Death)
  Sender: FDA-Public Use
  Company Number: APP201000500

PATIENT
  Age: 71 Year
  Sex: Female

DRUGS (3)
  1. METHYLPREDNISOLONE SODIUM SUCCINATE [Suspect]
     Indication: VISUAL ACUITY REDUCED
     Dosage: 3 GM, INTRAVENOUS
     Route: 042
     Dates: start: 20031201
  2. DIGOXIN [Concomitant]
  3. CLOPIDOGREL [Concomitant]

REACTIONS (5)
  - ATRIAL FIBRILLATION [None]
  - CARDIAC ARREST [None]
  - CORONARY ARTERY THROMBOSIS [None]
  - PULMONARY EMBOLISM [None]
  - RESPIRATORY ARREST [None]
